FAERS Safety Report 7897560-5 (Version None)
Quarter: 2011Q4

REPORT INFORMATION
  Report Type: 
  Country: None (occurrence: None)
  Receive Date: 20111107
  Receipt Date: 20111026
  Transmission Date: 20120403
  Serious: Yes (Hospitalization)
  Sender: FDA-Public Use
  Company Number: IT-ELI_LILLY_AND_COMPANY-IT201110006786

PATIENT

DRUGS (1)
  1. ALIMTA [Suspect]
     Indication: LUNG ADENOCARCINOMA
     Dosage: 950
     Route: 042
     Dates: start: 20110919

REACTIONS (4)
  - PARAESTHESIA [None]
  - SPEECH DISORDER [None]
  - PLEURAL EFFUSION [None]
  - ATRIAL FIBRILLATION [None]
